FAERS Safety Report 20849613 (Version 1)
Quarter: 2022Q2

REPORT INFORMATION
  Report Type: Report from Study
  Country: US (occurrence: US)
  Receive Date: 20220519
  Receipt Date: 20220519
  Transmission Date: 20220721
  Serious: No
  Sender: FDA-Public Use
  Company Number: US-NOVARTISTESTPH-NVSC2022US116128

PATIENT
  Age: 33 Year
  Sex: Female
  Weight: 66.2 kg

DRUGS (1)
  1. TASIGNA [Suspect]
     Active Substance: NILOTINIB
     Indication: Chronic myeloid leukaemia
     Dosage: 300 MG, BID
     Route: 065
     Dates: start: 20140118

REACTIONS (4)
  - Swelling [Unknown]
  - Abdominal distension [Unknown]
  - Liver function test abnormal [Unknown]
  - Bone pain [Unknown]
